FAERS Safety Report 21372037 (Version 1)
Quarter: 2022Q3

REPORT INFORMATION
  Report Type: Spontaneous
  Country: US (occurrence: US)
  Receive Date: 20220923
  Receipt Date: 20220923
  Transmission Date: 20221027
  Serious: Yes (Other)
  Sender: FDA-Public Use
  Company Number: US-BRISTOL-MYERS SQUIBB COMPANY-2022-110427

PATIENT
  Age: 74 Year
  Sex: Male
  Weight: 86.64 kg

DRUGS (1)
  1. REVLIMID [Suspect]
     Active Substance: LENALIDOMIDE
     Indication: Plasma cell myeloma
     Dosage: DOSE : 10 MG;     FREQ : DAILY FOR 14 DAYS AND STOP FOR 7 DAYS FOR A 21 DAY CYCLE
     Route: 048
     Dates: start: 202203

REACTIONS (2)
  - White blood cell count decreased [Unknown]
  - Off label use [Unknown]
